FAERS Safety Report 23416432 (Version 1)
Quarter: 2024Q1

REPORT INFORMATION
  Report Type: Spontaneous
  Country: US (occurrence: None)
  Receive Date: 20240117
  Receipt Date: 20240117
  Transmission Date: 20240410
  Serious: Yes (unspecified)
  Sender: FDA-Public Use
  Company Number: None

PATIENT
  Age: 71 Year
  Sex: Female

DRUGS (1)
  1. PAXLOVID [Suspect]
     Active Substance: NIRMATRELVIR\RITONAVIR
     Indication: SARS-CoV-2 test positive
     Route: 048
     Dates: start: 20240102, end: 20240102

REACTIONS (4)
  - Vomiting [None]
  - Skin exfoliation [None]
  - Nausea [None]
  - Lip exfoliation [None]

NARRATIVE: CASE EVENT DATE: 20240102
